FAERS Safety Report 13072006 (Version 1)
Quarter: 2016Q4

REPORT INFORMATION
  Report Type: Spontaneous
  Country: JP (occurrence: JP)
  Receive Date: 20161229
  Receipt Date: 20161229
  Transmission Date: 20170207
  Serious: Yes (Hospitalization, Other)
  Sender: FDA-Public Use
  Company Number: JP-ARBOR PHARMACEUTICALS, LLC-JP-2016ARB002447

PATIENT
  Age: 17 Year
  Sex: Female

DRUGS (5)
  1. LAMOTRIGINE. [Suspect]
     Active Substance: LAMOTRIGINE
     Dosage: 200 MG, QD
  2. SODIUM VALPROATE [Suspect]
     Active Substance: VALPROATE SODIUM
     Indication: TONIC CONVULSION
     Dosage: UNK
  3. SODIUM VALPROATE [Suspect]
     Active Substance: VALPROATE SODIUM
     Dosage: UNK
  4. CLOBAZAM [Suspect]
     Active Substance: CLOBAZAM
     Indication: TONIC CONVULSION
     Dosage: UNK
  5. LAMOTRIGINE. [Suspect]
     Active Substance: LAMOTRIGINE
     Indication: TONIC CONVULSION
     Dosage: UNK

REACTIONS (9)
  - Urinary tract infection [Unknown]
  - Blood immunoglobulin G decreased [Recovered/Resolved]
  - Rash [Unknown]
  - Blood immunoglobulin A decreased [Not Recovered/Not Resolved]
  - Blood immunoglobulin M decreased [Recovered/Resolved]
  - Selective IgA immunodeficiency [Not Recovered/Not Resolved]
  - Pyelonephritis acute [Unknown]
  - Hypogammaglobulinaemia [Unknown]
  - Selective IgG subclass deficiency [Unknown]
